FAERS Safety Report 23589284 (Version 1)
Quarter: 2024Q1

REPORT INFORMATION
  Report Type: Spontaneous
  Country: PT (occurrence: PT)
  Receive Date: 20240303
  Receipt Date: 20240303
  Transmission Date: 20240410
  Serious: Yes (Life-Threatening, Hospitalization, Other)
  Sender: FDA-Public Use
  Company Number: PT-Indoco-000511

PATIENT
  Age: 68 Year
  Sex: Female

DRUGS (1)
  1. ALLOPURINOL [Suspect]
     Active Substance: ALLOPURINOL
     Indication: Hyperuricaemia

REACTIONS (3)
  - Toxic epidermal necrolysis [Unknown]
  - Thrombocytopenia [Unknown]
  - Acute kidney injury [Unknown]
